FAERS Safety Report 23733789 (Version 1)
Quarter: 2024Q2

REPORT INFORMATION
  Report Type: Report from Study
  Country: CA (occurrence: CA)
  Receive Date: 20240412
  Receipt Date: 20240412
  Transmission Date: 20240716
  Serious: Yes (Other)
  Sender: FDA-Public Use
  Company Number: CA-JNJFOC-20240416341

PATIENT
  Sex: Male

DRUGS (1)
  1. IMBRUVICA [Suspect]
     Active Substance: IBRUTINIB
     Indication: Chronic lymphocytic leukaemia refractory
     Route: 048
     Dates: start: 201507, end: 202401

REACTIONS (4)
  - Clostridium difficile infection [Recovering/Resolving]
  - Platelet count decreased [Unknown]
  - Red blood cell abnormality [Unknown]
  - Blood urine present [Recovered/Resolved]
